FAERS Safety Report 5019849-X (Version None)
Quarter: 2006Q2

REPORT INFORMATION
  Report Type: 
  Country: None (occurrence: None)
  Receive Date: 20060601
  Receipt Date: 20060522
  Transmission Date: 20061013
  Serious: Yes (Other)
  Sender: FDA-Public Use
  Company Number: 2006066565

PATIENT
  Age: 65 Year
  Sex: Female

DRUGS (2)
  1. LITHIUM (LITHIUM) [Suspect]
     Indication: MAJOR DEPRESSION
     Dosage: 600 MG
     Dates: start: 20000101, end: 20060215
  2. VENLAFAXINE HCL [Concomitant]

REACTIONS (2)
  - DEMENTIA [None]
  - DIFFICULTY IN WALKING [None]
